FAERS Safety Report 10520054 (Version 1)
Quarter: 2014Q4

REPORT INFORMATION
  Report Type: Report from Study
  Country: US (occurrence: CA)
  Receive Date: 20141015
  Receipt Date: 20141015
  Transmission Date: 20150528
  Serious: Yes (Hospitalization)
  Sender: FDA-Public Use
  Company Number: US-MYLANLABS-2014M1007029

PATIENT
  Age: 68 Year
  Sex: Female
  Weight: 90 kg

DRUGS (2)
  1. HUMIRA [Suspect]
     Active Substance: ADALIMUMAB
     Dosage: 80 MG, QW
  2. METHOTREXATE SODIUM. [Suspect]
     Active Substance: METHOTREXATE SODIUM
     Dosage: 15 MG, QW
     Route: 058

REACTIONS (5)
  - Colostomy [Recovered/Resolved]
  - Intestinal obstruction [Recovered/Resolved]
  - Large intestinal obstruction [Recovered/Resolved]
  - Nausea [Recovered/Resolved]
  - Intestinal stenosis [Recovered/Resolved]
